FAERS Safety Report 24724340 (Version 1)
Quarter: 2024Q4

REPORT INFORMATION
  Report Type: Spontaneous
  Country: US (occurrence: US)
  Receive Date: 20241212
  Receipt Date: 20241212
  Transmission Date: 20250115
  Serious: No
  Sender: ELI LILLY AND COMPANY
  Company Number: US-ELI_LILLY_AND_COMPANY-US202412007985

PATIENT
  Age: 61 Year
  Sex: Female

DRUGS (1)
  1. ADCIRCA [Suspect]
     Active Substance: TADALAFIL
     Indication: Product used for unknown indication
     Dosage: 20 MG, 2 TABLETS ONCE PER DAY
     Route: 065

REACTIONS (5)
  - Drainage [Recovering/Resolving]
  - Lacrimation increased [Recovering/Resolving]
  - Cough [Recovering/Resolving]
  - Hypersensitivity [Recovering/Resolving]
  - Nasal congestion [Recovering/Resolving]

NARRATIVE: CASE EVENT DATE: 20241208
